FAERS Safety Report 8732453 (Version 2)
Quarter: 2013Q2

REPORT INFORMATION
  Report Type: Report from Study
  Country: US (occurrence: US)
  Receive Date: 20120820
  Receipt Date: 20130502
  Transmission Date: 20140414
  Serious: Yes (Hospitalization)
  Sender: FDA-Public Use
  Company Number: US-ROCHE-1099577

PATIENT
  Sex: Female
  Weight: 43.13 kg

DRUGS (1)
  1. XELODA [Suspect]
     Indication: COLON CANCER
     Route: 048

REACTIONS (5)
  - Stomatitis [Recovered/Resolved]
  - Neutropenia [Recovered/Resolved with Sequelae]
  - White blood cell disorder [Recovered/Resolved with Sequelae]
  - Electrolyte imbalance [Recovered/Resolved]
  - Asthenia [Recovered/Resolved with Sequelae]
